FAERS Safety Report 10641379 (Version 5)
Quarter: 2015Q1

REPORT INFORMATION
  Report Type: Spontaneous
  Country: JP (occurrence: None)
  Receive Date: 20141208
  Receipt Date: 20150203
  Transmission Date: 20150720
  Serious: Yes (Life-Threatening, Hospitalization, Other)
  Sender: FDA-Public Use
  Company Number: AXC-2014-000743

PATIENT
  Age: 40 Year
  Sex: Male
  Weight: 66 kg

DRUGS (15)
  1. GASTER [Suspect]
     Active Substance: FAMOTIDINE
     Indication: NAUSEA
     Route: 048
     Dates: start: 20120409, end: 20120413
  2. PRIMPERAN [Suspect]
     Active Substance: METOCLOPRAMIDE HYDROCHLORIDE
     Indication: CONTRAST MEDIA ALLERGY
     Route: 048
     Dates: start: 20120409, end: 20120413
  3. LANSOPRAZOLE (LANSOPRAZOLE) [Concomitant]
     Active Substance: LANSOPRAZOLE
  4. SOL-MELCORT (METHYLPREDISOLONE SODIUM SUCCINATE) [Concomitant]
  5. ALENDRONATE (ALENDRONATE SODIUM) [Concomitant]
     Active Substance: ALENDRONATE SODIUM
  6. IMUNOGLOBULIN G (IMUNOGLOBULIN G HUMAN) [Concomitant]
  7. ULINASTATIN (ULINASTATIN) [Concomitant]
  8. PRIMPERAN [Suspect]
     Active Substance: METOCLOPRAMIDE HYDROCHLORIDE
     Indication: VOMITING
     Route: 048
     Dates: start: 20120409, end: 20120413
  9. LENDORMIN [Suspect]
     Active Substance: BROTIZOLAM
     Indication: PRODUCT USED FOR UNKNOWN INDICATION
     Route: 048
     Dates: start: 201106, end: 20120414
  10. LAC-B (BIFIDOBACTERIUM LACTIS) [Concomitant]
  11. URSODEOXYCHOLIC ACID [Suspect]
     Active Substance: URSODIOL
     Indication: HEPATIC FAILURE
     Route: 048
     Dates: start: 20120409, end: 20120413
  12. PRIMPERAN [Suspect]
     Active Substance: METOCLOPRAMIDE HYDROCHLORIDE
     Indication: NAUSEA
     Route: 048
     Dates: start: 20120409, end: 20120413
  13. LYRICA [Suspect]
     Active Substance: PREGABALIN
     Indication: HYPOAESTHESIA
     Route: 048
     Dates: start: 201107, end: 201107
  14. SULFAMETHOXAZOLE AND TRIMETHOPRIM (SULFAMETHOXAZOLE AND TRIMETHOPRIM) [Concomitant]
  15. PREDONINE /00016201/ (PREDNISOLONE) [Concomitant]

REACTIONS (20)
  - Oral mucosal erythema [None]
  - Erythema [None]
  - Hypoxia [None]
  - Pyrexia [None]
  - Human herpesvirus 6 infection [None]
  - Drug-induced liver injury [None]
  - Vomiting [None]
  - Face oedema [None]
  - Mouth haemorrhage [None]
  - Tachypnoea [None]
  - Sarcoidosis [None]
  - Scab [None]
  - Hepatic steatosis [None]
  - Drug reaction with eosinophilia and systemic symptoms [None]
  - Papule [None]
  - Hilar lymphadenopathy [None]
  - Abdominal distension [None]
  - Dyspnoea [None]
  - Jaundice [None]
  - Lymphadenopathy mediastinal [None]

NARRATIVE: CASE EVENT DATE: 20120410
